FAERS Safety Report 8801038 (Version 11)
Quarter: 2013Q3

REPORT INFORMATION
  Report Type: Spontaneous
  Country: US (occurrence: US)
  Receive Date: 20120921
  Receipt Date: 20130904
  Transmission Date: 20140515
  Serious: Yes (Death, Life-Threatening, Hospitalization, Disabling)
  Sender: FDA-Public Use
  Company Number: US-GLAXOSMITHKLINE-A0993939A

PATIENT
  Age: 70 Year
  Sex: Female
  Weight: 58 kg

DRUGS (1)
  1. FLOLAN [Suspect]
     Indication: PULMONARY ARTERIAL HYPERTENSION
     Dosage: 41NGKM CONTINUOUS
     Route: 065
     Dates: start: 20100127

REACTIONS (11)
  - Interstitial lung disease [Fatal]
  - Pulmonary hypertension [Fatal]
  - Pulmonary hypertension [Recovering/Resolving]
  - Cardiac failure [Recovering/Resolving]
  - Cardiac failure congestive [Recovering/Resolving]
  - Interstitial lung disease [Recovering/Resolving]
  - Adverse event [Recovering/Resolving]
  - Dyspnoea [Unknown]
  - Viral infection [Unknown]
  - Oedema peripheral [Not Recovered/Not Resolved]
  - Cough [Not Recovered/Not Resolved]
